FAERS Safety Report 12983332 (Version 1)
Quarter: 2016Q4

REPORT INFORMATION
  Report Type: Spontaneous
  Country: US (occurrence: US)
  Receive Date: 20161129
  Receipt Date: 20161129
  Transmission Date: 20170207
  Serious: No
  Sender: FDA-Public Use
  Company Number: US-KERYX BIOPHARMACEUTICALS, INC.-2016US002065

PATIENT
  Age: 24 Year
  Sex: Female

DRUGS (3)
  1. PHOSLO [Concomitant]
     Active Substance: CALCIUM ACETATE
     Indication: PRODUCT USED FOR UNKNOWN INDICATION
     Dosage: UNK, BEGINNING OF MEAL
     Route: 048
  2. PHOSLO [Concomitant]
     Active Substance: CALCIUM ACETATE
     Dosage: UNK
     Dates: start: 20160609
  3. AURYXIA [Suspect]
     Active Substance: TETRAFERRIC TRICITRATE DECAHYDRATE
     Indication: BLOOD PHOSPHORUS INCREASED
     Dosage: 3 TABS, DAILY (2 WITH MEALS, ONE WITH SNACKS)
     Route: 048
     Dates: start: 20150921, end: 20160609

REACTIONS (1)
  - Dysphagia [Recovered/Resolved]

NARRATIVE: CASE EVENT DATE: 20160607
